FAERS Safety Report 5719397-5 (Version None)
Quarter: 2008Q2

REPORT INFORMATION
  Report Type: 
  Country: None (occurrence: None)
  Receive Date: 20080428
  Receipt Date: 20080418
  Transmission Date: 20081010
  Serious: Yes (Hospitalization, Other)
  Sender: FDA-Public Use
  Company Number: PHHY2008BR06183

PATIENT
  Age: 72 Year
  Sex: Male

DRUGS (6)
  1. CARVEDILOL [Concomitant]
     Dosage: UNK, BID
     Route: 048
  2. ACETYLSALICYLIC ACID SRT [Concomitant]
     Dosage: 1 TABLET DAILY
     Route: 048
  3. CIPROFIBRATE [Concomitant]
     Indication: HYPERTENSION
     Dosage: 1 DF, UNK
     Route: 048
     Dates: start: 20070801
  4. ALDACTONE [Concomitant]
     Indication: HYPERTENSION
     Dosage: 1 TABLET DAILY
     Route: 048
     Dates: start: 20070801
  5. COLCHICINE [Concomitant]
     Indication: GOUT
  6. DIOVAN [Suspect]
     Indication: HYPERTENSION
     Dosage: 1 DF
     Route: 048

REACTIONS (10)
  - ASTHENIA [None]
  - BLOOD PRESSURE FLUCTUATION [None]
  - BONE DISORDER [None]
  - CHOKING [None]
  - MALAISE [None]
  - NERVOUSNESS [None]
  - SYNCOPE [None]
  - VASCULAR GRAFT [None]
  - VISION BLURRED [None]
  - VISUAL DISTURBANCE [None]
